FAERS Safety Report 9727959 (Version 2)
Quarter: 2013Q4

REPORT INFORMATION
  Report Type: Spontaneous
  Country: CA (occurrence: CA)
  Receive Date: 20131204
  Receipt Date: 20131227
  Transmission Date: 20140711
  Serious: Yes (Death, Hospitalization)
  Sender: FDA-Public Use
  Company Number: CA-AMGEN-CANSP2013084417

PATIENT
  Age: 76 Year
  Sex: Female
  Weight: 38.1 kg

DRUGS (6)
  1. PROLIA [Suspect]
     Indication: OSTEOPOROSIS POSTMENOPAUSAL
     Dosage: 60 MG, Q6MO
     Route: 058
     Dates: start: 201206
  2. PREDNISONE [Concomitant]
     Indication: RHEUMATOID ARTHRITIS
     Dosage: 5 MG, EVERY OTHER DAY
     Route: 048
  3. PLAQUENIL                          /00072602/ [Concomitant]
     Indication: RHEUMATOID ARTHRITIS
     Dosage: 200 MG, BID
     Route: 048
  4. ASA [Concomitant]
     Dosage: 80 MG, EVERY OTHER DAY
  5. LIPITOR [Concomitant]
     Dosage: 20 MG, UNK
     Route: 048
  6. MAVIK [Concomitant]
     Dosage: 4 MG, EVERY OTHER DAY
     Route: 048

REACTIONS (2)
  - Multi-organ failure [Fatal]
  - Dementia Alzheimer^s type [Unknown]
